FAERS Safety Report 24960976 (Version 1)
Quarter: 2025Q1

REPORT INFORMATION
  Report Type: Spontaneous
  Country: US (occurrence: US)
  Receive Date: 20250212
  Receipt Date: 20250212
  Transmission Date: 20250408
  Serious: No
  Sender: MERCK SHARP & DOHME LLC
  Company Number: US-PFIZER INC-PV202400136515

PATIENT
  Age: 70 Year
  Sex: Female

DRUGS (1)
  1. TUKYSA [Suspect]
     Active Substance: TUCATINIB
     Indication: Human epidermal growth factor receptor test
     Dosage: 150 MG, 2X/DAY
     Dates: start: 202406

REACTIONS (1)
  - Off label use [Unknown]
